FAERS Safety Report 14957100 (Version 1)
Quarter: 2018Q2

REPORT INFORMATION
  Report Type: Spontaneous
  Country: US (occurrence: US)
  Receive Date: 20180509
  Receipt Date: 20180509
  Transmission Date: 20180711
  Serious: Yes (Other)
  Sender: FDA-Public Use
  Company Number: None

PATIENT
  Age: 52 Year
  Sex: Female

DRUGS (2)
  1. RANEXA [Suspect]
     Active Substance: RANOLAZINE
     Indication: CHEST PAIN
     Route: 048
     Dates: start: 20180421, end: 20180506
  2. RANEXA 100 MG ER [Concomitant]
     Dates: start: 20180421, end: 20180506

REACTIONS (3)
  - Headache [None]
  - Dizziness [None]
  - Dysgeusia [None]

NARRATIVE: CASE EVENT DATE: 20180421
